FAERS Safety Report 5050117-6 (Version None)
Quarter: 2006Q3

REPORT INFORMATION
  Report Type: 
  Country: None (occurrence: None)
  Receive Date: 20060713
  Receipt Date: 20060628
  Transmission Date: 20061208
  Serious: Yes (Hospitalization)
  Sender: FDA-Public Use
  Company Number: GB-AMGEN-UK184685

PATIENT
  Sex: Female
  Weight: 63 kg

DRUGS (22)
  1. NEULASTA [Suspect]
     Indication: CHEMOTHERAPY
     Route: 058
     Dates: start: 20060501
  2. DIFFLAM [Concomitant]
     Route: 065
  3. MUCAINE [Concomitant]
     Route: 065
  4. ENOXAPARIN SODIUM [Concomitant]
     Route: 065
  5. IBUPROFEN [Concomitant]
     Route: 065
  6. ORAMORPH SR [Concomitant]
     Route: 065
  7. POTASSIUM [Concomitant]
     Route: 065
  8. CLARITHROMYCIN [Concomitant]
     Route: 065
  9. FLUCONAZOLE [Concomitant]
     Route: 065
  10. FLURBIPROFEN [Concomitant]
     Route: 065
  11. SENNA [Concomitant]
     Route: 065
  12. SODIUM BICARBONATE [Concomitant]
     Route: 065
  13. TEMAZEPAM [Concomitant]
     Route: 065
  14. SLOW-K [Concomitant]
     Route: 065
  15. WARFARIN SODIUM [Concomitant]
     Route: 065
  16. EPIRUBICIN [Concomitant]
     Route: 065
  17. CYCLOPHOSPHAMIDE [Concomitant]
     Route: 040
  18. METHOTREXATE [Concomitant]
     Route: 040
  19. FLUOROURACIL [Concomitant]
     Route: 040
  20. ACYCLOVIR [Concomitant]
     Route: 065
  21. CEFTAZIDIME [Concomitant]
     Route: 065
  22. GENTAMICIN [Concomitant]
     Route: 065

REACTIONS (9)
  - ALVEOLITIS ALLERGIC [None]
  - CAMPYLOBACTER INTESTINAL INFECTION [None]
  - DIARRHOEA [None]
  - MUCOSAL INFLAMMATION [None]
  - NEUTROPENIA [None]
  - PULMONARY EMBOLISM [None]
  - PYREXIA [None]
  - TACHYCARDIA [None]
  - VAGINAL EXFOLIATION [None]
